FAERS Safety Report 7944705-4 (Version None)
Quarter: 2011Q4

REPORT INFORMATION
  Report Type: 
  Country: None (occurrence: None)
  Receive Date: 20111114
  Receipt Date: 20110825
  Transmission Date: 20120403
  Serious: No
  Sender: FDA-Public Use
  Company Number: 1000023151

PATIENT
  Age: 66 Year
  Sex: Female

DRUGS (9)
  1. TOPAMAX [Suspect]
     Indication: MIGRAINE
  2. MULTIVITAMINS (MULTIVITAMINS) (MULTIVITAMINS) [Concomitant]
  3. CLONAZEPAM [Suspect]
     Indication: RESTLESS LEGS SYNDROME
  4. IMITREX (SUMATRIPTAN) (SUMATRIPTAN) [Concomitant]
  5. SYNTHROID (LEVOTHYROXINE SODIUM) (LEVOTHYROXINE SODIUM) [Concomitant]
  6. DITROPAN (OXYBUTYMIN HYDROCHLORIDE) (OXYBUTYMIN HYDROCHLORIDE) [Concomitant]
  7. PERCOCET (OXYCODONE, ACETAMINOPHEN) (OXYCODONE, ACETAMINOPHEN) [Concomitant]
  8. WELLBUTRIN (BUPROPION HYDROCHLORIDE) (BUPROPION HYDROCHLORIDE) [Concomitant]
  9. SAVELLA [Suspect]
     Indication: FIBROMYALGIA
     Dosage: 12.5 (12.5 MG, 1 IN 1, D), ORAL
     Route: 048
     Dates: start: 20110823, end: 20110824

REACTIONS (2)
  - INSOMNIA [None]
  - MIGRAINE [None]
